FAERS Safety Report 10563108 (Version 1)
Quarter: 2014Q4

REPORT INFORMATION
  Report Type: Spontaneous
  Country: US (occurrence: None)
  Receive Date: 20141103
  Receipt Date: 20141103
  Transmission Date: 20150529
  Serious: No
  Sender: FDA-Public Use
  Company Number: None

PATIENT
  Age: 37 Year
  Sex: Female

DRUGS (4)
  1. VANCOMYCIN [Suspect]
     Active Substance: VANCOMYCIN
     Indication: WOUND INFECTION
     Dosage: 1.75G, EVERY 12 HOURS, IV?
     Route: 042
     Dates: start: 20140826
  2. CASPOFUNGIN [Suspect]
     Active Substance: CASPOFUNGIN
     Route: 042
  3. HYDROMORPHONE [Concomitant]
     Active Substance: HYDROMORPHONE
  4. MEROPENEM. [Concomitant]
     Active Substance: MEROPENEM

REACTIONS (4)
  - White blood cell count decreased [None]
  - Postoperative wound complication [None]
  - Cytopenia [None]
  - Pyrexia [None]

NARRATIVE: CASE EVENT DATE: 20140822
